FAERS Safety Report 4965998-1 (Version None)
Quarter: 2006Q2

REPORT INFORMATION
  Report Type: 
  Country: None (occurrence: None)
  Receive Date: 20060407
  Receipt Date: 20060403
  Transmission Date: 20061013
  Serious: Yes (Other)
  Sender: FDA-Public Use
  Company Number: US-GLAXOSMITHKLINE-A0600107A

PATIENT
  Age: 62 Year
  Sex: Male

DRUGS (10)
  1. WELLBUTRIN XL [Suspect]
     Indication: DEPRESSION
     Dosage: 150MG PER DAY
     Route: 048
     Dates: start: 20040601, end: 20040801
  2. CYMBALTA [Concomitant]
  3. ACIPHEX [Concomitant]
  4. METOPROLOL SUCCINATE [Concomitant]
  5. ZYRTEC [Concomitant]
  6. SINGULAIR [Concomitant]
  7. ADVAIR DISKUS 100/50 [Concomitant]
  8. SPIRIVA [Concomitant]
  9. ASPIRIN [Concomitant]
  10. MULTIVITAMIN [Concomitant]

REACTIONS (4)
  - DISINHIBITION [None]
  - MANIA [None]
  - MOOD ALTERED [None]
  - PERSONALITY CHANGE [None]
